FAERS Safety Report 20667303 (Version 1)
Quarter: 2022Q2

REPORT INFORMATION
  Report Type: Spontaneous
  Country: US (occurrence: US)
  Receive Date: 20220404
  Receipt Date: 20220404
  Transmission Date: 20220721
  Serious: No
  Sender: FDA-Public Use
  Company Number: US-JNJFOC-20220365754

PATIENT
  Age: 73 Year
  Sex: Male

DRUGS (1)
  1. ZYTIGA [Suspect]
     Active Substance: ABIRATERONE ACETATE
     Indication: Product used for unknown indication
     Dosage: TABLETS BY MOUTH ONCE DAILY AS DIRECTED. TAKE 1 HOUR BEFOREOR 2 HOURS AFTER A MEAL
     Route: 048

REACTIONS (1)
  - Platelet function test abnormal [Unknown]

NARRATIVE: CASE EVENT DATE: 20220330
